FAERS Safety Report 23964970 (Version 1)
Quarter: 2024Q2

REPORT INFORMATION
  Report Type: Spontaneous
  Country: US (occurrence: US)
  Receive Date: 20240612
  Receipt Date: 20240612
  Transmission Date: 20240716
  Serious: No
  Sender: FDA-Public Use
  Company Number: US-STRIDES ARCOLAB LIMITED-2024SP004775

PATIENT
  Age: 1 Decade
  Sex: Female

DRUGS (6)
  1. HYDROCORTISONE [Suspect]
     Active Substance: HYDROCORTISONE\HYDROCORTISONE ACETATE
     Indication: Dermatitis diaper
     Dosage: UNK (FOR MANY MONTHS)
     Route: 065
  2. TACROLIMUS [Suspect]
     Active Substance: TACROLIMUS
     Indication: Psoriasis
     Dosage: UNK
     Route: 065
  3. TACROLIMUS [Suspect]
     Active Substance: TACROLIMUS
     Dosage: UNK
     Route: 065
  4. CLOTRIMAZOLE [Suspect]
     Active Substance: CLOTRIMAZOLE
     Indication: Dermatitis diaper
     Dosage: UNK (FOR MANY MONTHS)
     Route: 065
  5. ZINC OXIDE [Suspect]
     Active Substance: ZINC OXIDE
     Indication: Dermatitis diaper
     Dosage: UNK (FOR MANY MONTHS)
     Route: 065
  6. AQUAPHOR [Suspect]
     Active Substance: PETROLATUM
     Indication: Dermatitis diaper
     Dosage: UNK (FOR MANY MONTHS)
     Route: 065

REACTIONS (2)
  - Therapy non-responder [Unknown]
  - Off label use [Unknown]
